FAERS Safety Report 7732031-8 (Version None)
Quarter: 2011Q3

REPORT INFORMATION
  Report Type: 
  Country: None (occurrence: None)
  Receive Date: 20110906
  Receipt Date: 20110731
  Transmission Date: 20111222
  Serious: No
  Sender: FDA-Public Use
  Company Number: US-AMGEN-USASP2011038793

PATIENT
  Age: 70 Year
  Sex: Female

DRUGS (11)
  1. PROLIA [Suspect]
     Indication: OSTEOPOROSIS POSTMENOPAUSAL
     Dates: start: 20110101
  2. GLUCOSAMINE + CHONDROITIN WITH MSM [Concomitant]
  3. MULTIVITAMIN                       /00097801/ [Concomitant]
  4. ASPIRIN [Concomitant]
     Dosage: UNK
  5. MICRONOR [Concomitant]
  6. VITAMIN B [Concomitant]
  7. SYNTHROID [Concomitant]
  8. CITRICAL D [Concomitant]
  9. DITROPAN XL [Concomitant]
  10. ZOCOR [Concomitant]
  11. OMEGA 3                            /00931501/ [Concomitant]

REACTIONS (4)
  - PAIN IN EXTREMITY [None]
  - BACK PAIN [None]
  - NECK PAIN [None]
  - MYALGIA [None]
